FAERS Safety Report 24682289 (Version 2)
Quarter: 2025Q1

REPORT INFORMATION
  Report Type: Spontaneous
  Country: PT (occurrence: PT)
  Receive Date: 20241130
  Receipt Date: 20250111
  Transmission Date: 20250408
  Serious: Yes (Hospitalization, Other)
  Sender: ACCORD
  Company Number: PT-Accord-457994

PATIENT
  Age: 68 Year
  Sex: Female

DRUGS (1)
  1. TRASTUZUMAB [Suspect]
     Active Substance: TRASTUZUMAB
     Indication: Product used for unknown indication

REACTIONS (2)
  - Cardiotoxicity [Unknown]
  - Cardiac failure [Unknown]
